FAERS Safety Report 14278751 (Version 3)
Quarter: 2018Q1

REPORT INFORMATION
  Report Type: Report from Study
  Country: US (occurrence: US)
  Receive Date: 20171212
  Receipt Date: 20180313
  Transmission Date: 20180508
  Serious: No
  Sender: FDA-Public Use
  Company Number: PHEH2017US038831

PATIENT
  Sex: Female

DRUGS (5)
  1. CARBAMAZEPINE. [Suspect]
     Active Substance: CARBAMAZEPINE
     Indication: SEIZURE
     Route: 065
  2. LEVETIRACETAM. [Suspect]
     Active Substance: LEVETIRACETAM
     Indication: SEIZURE
     Route: 065
  3. TEGRETOL [Suspect]
     Active Substance: CARBAMAZEPINE
     Indication: SEIZURE
     Dosage: 200 MG, BID
     Route: 048
  4. KEPPRA [Suspect]
     Active Substance: LEVETIRACETAM
     Indication: SEIZURE
     Route: 065
  5. DILANTIN [Suspect]
     Active Substance: PHENYTOIN
     Indication: SEIZURE
     Route: 065

REACTIONS (14)
  - Feeling drunk [Unknown]
  - Malaise [Unknown]
  - Eye movement disorder [Unknown]
  - Fall [Unknown]
  - Dizziness [Unknown]
  - Vomiting [Unknown]
  - Hypersensitivity [Unknown]
  - Swelling face [Unknown]
  - Diplopia [Unknown]
  - Depression [Unknown]
  - Anger [Unknown]
  - Sleep disorder [Unknown]
  - Lethargy [Unknown]
  - Nausea [Unknown]
